FAERS Safety Report 4990921-3 (Version None)
Quarter: 2006Q2

REPORT INFORMATION
  Report Type: 
  Country: None (occurrence: None)
  Receive Date: 20060503
  Receipt Date: 20050406
  Transmission Date: 20061013
  Serious: Yes (Hospitalization, Other)
  Sender: FDA-Public Use
  Company Number: US-MERCK-0504USA01046

PATIENT
  Age: 79 Year
  Sex: Female
  Weight: 68 kg

DRUGS (7)
  1. VIOXX [Suspect]
     Indication: OSTEOARTHRITIS
     Route: 048
     Dates: start: 19991012, end: 20030228
  2. VIOXX [Suspect]
     Route: 048
     Dates: start: 20010809, end: 20010814
  3. VIOXX [Suspect]
     Route: 048
     Dates: start: 20020404, end: 20020417
  4. VIOXX [Suspect]
     Indication: LUMBAR SPINAL STENOSIS
     Route: 048
     Dates: start: 19991012, end: 20030228
  5. VIOXX [Suspect]
     Route: 048
     Dates: start: 20010809, end: 20010814
  6. VIOXX [Suspect]
     Route: 048
     Dates: start: 20020404, end: 20020417
  7. TYLENOL (CAPLET) [Concomitant]
     Route: 065

REACTIONS (21)
  - BACK DISORDER [None]
  - BLOOD TRIGLYCERIDES INCREASED [None]
  - CALCINOSIS [None]
  - CARDIAC FAILURE CONGESTIVE [None]
  - CELLULITIS [None]
  - CORONARY ARTERY DISEASE [None]
  - COUGH [None]
  - DEEP VEIN THROMBOSIS [None]
  - DRUG HYPERSENSITIVITY [None]
  - DYSPNOEA [None]
  - DYSPNOEA PAROXYSMAL NOCTURNAL [None]
  - HIP ARTHROPLASTY [None]
  - HYPERTRIGLYCERIDAEMIA [None]
  - INJURY [None]
  - LEUKOCYTOSIS [None]
  - LOW DENSITY LIPOPROTEIN DECREASED [None]
  - ORTHOPNOEA [None]
  - PNEUMONIA [None]
  - PULMONARY HYPERTENSION [None]
  - SPUTUM DISCOLOURED [None]
  - WOUND INFECTION [None]
